FAERS Safety Report 5319079-8 (Version None)
Quarter: 2007Q2

REPORT INFORMATION
  Report Type: 
  Country: None (occurrence: None)
  Receive Date: 20070508
  Receipt Date: 20070427
  Transmission Date: 20071010
  Serious: Yes (Hospitalization)
  Sender: FDA-Public Use
  Company Number: FR-JNJFOC-20070401851

PATIENT
  Age: 51 Year
  Sex: Female
  Weight: 65 kg

DRUGS (10)
  1. REMICADE [Suspect]
     Route: 042
  2. REMICADE [Suspect]
     Dosage: NEW INDUCTION PROTOCOL
     Route: 042
  3. REMICADE [Suspect]
     Indication: PSORIASIS
     Route: 042
  4. TERCIAN [Concomitant]
  5. ATARAX [Concomitant]
  6. RISPERDAL [Concomitant]
  7. DIAMICRON [Concomitant]
  8. METFORMIN HCL [Concomitant]
  9. TRIATEC [Concomitant]
  10. LOZOL [Concomitant]

REACTIONS (2)
  - DELIRIUM [None]
  - ULNA FRACTURE [None]
